FAERS Safety Report 9349543 (Version 4)
Quarter: 2013Q3

REPORT INFORMATION
  Report Type: Report from Study
  Country: JP (occurrence: JP)
  Receive Date: 20130614
  Receipt Date: 20130725
  Transmission Date: 20140515
  Serious: No
  Sender: FDA-Public Use
  Company Number: JP-GLAXOSMITHKLINE-B0895357A

PATIENT
  Age: 35 Year
  Sex: 0

DRUGS (2)
  1. VOTRIENT [Suspect]
     Indication: ANGIOSARCOMA
     Route: 048
     Dates: start: 20130520
  2. VOTRIENT [Suspect]
     Indication: ANGIOSARCOMA
     Route: 048

REACTIONS (5)
  - Pyrexia [Recovered/Resolved]
  - Nausea [Recovered/Resolved]
  - Diarrhoea [Not Recovered/Not Resolved]
  - Blood bilirubin abnormal [Unknown]
  - Blood thyroid stimulating hormone decreased [Unknown]
